FAERS Safety Report 21546086 (Version 2)
Quarter: 2022Q4

REPORT INFORMATION
  Report Type: Report from Study
  Country: US (occurrence: US)
  Receive Date: 20221103
  Receipt Date: 20221211
  Transmission Date: 20230113
  Serious: Yes (Other)
  Sender: FDA-Public Use
  Company Number: US-ABBVIE-22K-163-4466437-00

PATIENT
  Sex: Female

DRUGS (1)
  1. HUMIRA [Suspect]
     Active Substance: ADALIMUMAB
     Indication: Ankylosing spondylitis
     Dosage: 2022 WAS TAKEN AS END DATE BUT NOT ENTERED IN LAST ADMIN DATE DUE TO SUBMISSION FAILURE
     Route: 058
     Dates: start: 20220606, end: 20221010

REACTIONS (6)
  - Joint stiffness [Not Recovered/Not Resolved]
  - Mobility decreased [Unknown]
  - Therapeutic response shortened [Not Recovered/Not Resolved]
  - Back pain [Not Recovered/Not Resolved]
  - Pain in extremity [Unknown]
  - Malaise [Unknown]

NARRATIVE: CASE EVENT DATE: 20220101
